FAERS Safety Report 11695772 (Version 2)
Quarter: 2015Q4

REPORT INFORMATION
  Report Type: Report from Study
  Country: JP (occurrence: JP)
  Receive Date: 20151104
  Receipt Date: 20151118
  Transmission Date: 20160304
  Serious: Yes (Hospitalization)
  Sender: FDA-Public Use
  Company Number: PHHY2014JP180582

PATIENT
  Age: 68 Year
  Sex: Male

DRUGS (27)
  1. BRUFEN//IBUPROFEN [Concomitant]
     Active Substance: IBUPROFEN
     Dosage: 200 MG, QD
     Route: 065
     Dates: start: 20140613, end: 20140613
  2. POLARAMINE [Concomitant]
     Active Substance: DEXCHLORPHENIRAMINE MALEATE
     Dosage: 2 MG, QD
     Route: 065
     Dates: start: 20140613, end: 20140613
  3. POLARAMINE [Concomitant]
     Active Substance: DEXCHLORPHENIRAMINE MALEATE
     Dosage: 2 MG, QD
     Route: 065
     Dates: start: 20140620, end: 20140620
  4. POLARAMINE [Concomitant]
     Active Substance: DEXCHLORPHENIRAMINE MALEATE
     Dosage: 2 MG, QD
     Route: 065
     Dates: start: 20140627, end: 20140627
  5. OFATUMUMAB [Suspect]
     Active Substance: OFATUMUMAB
     Indication: CHRONIC LYMPHOCYTIC LEUKAEMIA
     Dosage: 300 MG, QD
     Route: 041
     Dates: start: 20140529, end: 20140529
  6. OFATUMUMAB [Suspect]
     Active Substance: OFATUMUMAB
     Dosage: 2000 MG, QD
     Route: 041
     Dates: start: 20140704, end: 20140704
  7. PREDNISOLONE. [Concomitant]
     Active Substance: PREDNISOLONE
     Dosage: 100 MG, QD
     Route: 065
     Dates: start: 20140605, end: 20140605
  8. BRUFEN//IBUPROFEN [Concomitant]
     Active Substance: IBUPROFEN
     Dosage: 200 MG, QD
     Route: 065
     Dates: start: 20140605, end: 20140605
  9. OFATUMUMAB [Suspect]
     Active Substance: OFATUMUMAB
     Dosage: 2000 MG, QD
     Route: 041
     Dates: start: 20140605, end: 20140605
  10. OFATUMUMAB [Suspect]
     Active Substance: OFATUMUMAB
     Dosage: 2000 MG, QD
     Route: 041
     Dates: start: 20140627, end: 20140627
  11. OFATUMUMAB [Suspect]
     Active Substance: OFATUMUMAB
     Dosage: 2000 MG, QD
     Route: 041
     Dates: start: 20140718, end: 20140718
  12. BRUFEN//IBUPROFEN [Concomitant]
     Active Substance: IBUPROFEN
     Dosage: 200 MG, QD
     Route: 065
     Dates: start: 20140627, end: 20140627
  13. BRUFEN//IBUPROFEN [Concomitant]
     Active Substance: IBUPROFEN
     Dosage: 200 MG, QD
     Route: 065
     Dates: start: 20140718, end: 20140718
  14. POLARAMINE [Concomitant]
     Active Substance: DEXCHLORPHENIRAMINE MALEATE
     Dosage: 2 MG, QD
     Route: 065
     Dates: start: 20140718, end: 20140718
  15. OFATUMUMAB [Suspect]
     Active Substance: OFATUMUMAB
     Dosage: 2000 MG, QD
     Route: 041
     Dates: start: 20140620, end: 20140620
  16. OFATUMUMAB [Suspect]
     Active Substance: OFATUMUMAB
     Dosage: 2000 MG, QD
     Route: 041
     Dates: start: 20140711, end: 20140711
  17. PREDNISOLONE. [Concomitant]
     Active Substance: PREDNISOLONE
     Indication: PREMEDICATION
     Dosage: 100 MG, QD
     Route: 065
     Dates: start: 20140529, end: 20140529
  18. BRUFEN//IBUPROFEN [Concomitant]
     Active Substance: IBUPROFEN
     Dosage: 200 MG, QD
     Route: 065
     Dates: start: 20140711, end: 20140711
  19. POLARAMINE [Concomitant]
     Active Substance: DEXCHLORPHENIRAMINE MALEATE
     Dosage: 2 MG, QD
     Route: 065
     Dates: start: 20140704, end: 20140704
  20. FLUDARABINE [Concomitant]
     Active Substance: FLUDARABINE PHOSPHATE
     Indication: CHRONIC LYMPHOCYTIC LEUKAEMIA
     Dosage: ?????
     Route: 065
  21. POLARAMINE [Concomitant]
     Active Substance: DEXCHLORPHENIRAMINE MALEATE
     Dosage: 2 MG, QD
     Route: 065
     Dates: start: 20140605, end: 20140605
  22. POLARAMINE [Concomitant]
     Active Substance: DEXCHLORPHENIRAMINE MALEATE
     Dosage: 2 MG, QD
     Route: 065
     Dates: start: 20140711, end: 20140711
  23. OFATUMUMAB [Suspect]
     Active Substance: OFATUMUMAB
     Dosage: 2000 MG, QD
     Route: 041
     Dates: start: 20140613, end: 20140613
  24. BRUFEN//IBUPROFEN [Concomitant]
     Active Substance: IBUPROFEN
     Dosage: 200 MG, QD
     Route: 065
     Dates: start: 20140620, end: 20140620
  25. BRUFEN//IBUPROFEN [Concomitant]
     Active Substance: IBUPROFEN
     Dosage: 200 MG, QD
     Route: 065
     Dates: start: 20140704, end: 20140704
  26. BRUFEN//IBUPROFEN [Concomitant]
     Active Substance: IBUPROFEN
     Indication: PREMEDICATION
     Dosage: 200 MG, QD
     Route: 065
     Dates: start: 20140529, end: 20140529
  27. POLARAMINE [Concomitant]
     Active Substance: DEXCHLORPHENIRAMINE MALEATE
     Indication: PREMEDICATION
     Dosage: 2 MG, QD
     Route: 065
     Dates: start: 20140529, end: 20140529

REACTIONS (2)
  - Rash [Recovered/Resolved]
  - Hepatic function abnormal [Recovered/Resolved]

NARRATIVE: CASE EVENT DATE: 20140529
